FAERS Safety Report 16601905 (Version 1)
Quarter: 2019Q3

REPORT INFORMATION
  Report Type: Report from Study
  Country: DE (occurrence: DE)
  Receive Date: 20190719
  Receipt Date: 20190719
  Transmission Date: 20191004
  Serious: Yes (Other)
  Sender: FDA-Public Use
  Company Number: PHHY2019DE007203

PATIENT
  Sex: Female
  Weight: 54 kg

DRUGS (11)
  1. LETROZOLE. [Suspect]
     Active Substance: LETROZOLE
     Indication: BREAST CANCER METASTATIC
     Dosage: 2.5 MG, QD
     Route: 048
     Dates: start: 20181122, end: 20190514
  2. LATANOPROST. [Concomitant]
     Active Substance: LATANOPROST
     Indication: PROPHYLAXIS
     Dosage: UNK
     Route: 065
  3. KISQALI [Suspect]
     Active Substance: RIBOCICLIB
     Dosage: 200 MG, (ADMINISTRATION SCHEME 21 DAYS INTAKE, 7 DAYS PAUSE) QD
     Route: 048
     Dates: start: 20190420, end: 20190514
  4. KISQALI [Suspect]
     Active Substance: RIBOCICLIB
     Dosage: 200 MG, (ADMINISTRATION SCHEME 21 DAYS INTAKE, 7 DAYS PAUSE) QD
     Route: 048
     Dates: start: 20190103, end: 20190123
  5. SIMVASTATIN. [Concomitant]
     Active Substance: SIMVASTATIN
     Indication: ARRHYTHMIA
     Dosage: 20 MG, UNK
     Route: 065
  6. KISQALI [Suspect]
     Active Substance: RIBOCICLIB
     Indication: BREAST CANCER METASTATIC
     Dosage: 600 MG, (ADMINISTRATION SCHEME 21 DAYS INTAKE, 7 DAYS PAUSE) QD
     Route: 048
     Dates: start: 20181122, end: 20181218
  7. L THYROXINE [Concomitant]
     Active Substance: LEVOTHYROXINE SODIUM
     Indication: GOITRE
     Dosage: 75 MG, UNK
     Route: 065
  8. BISOPROLOL [Concomitant]
     Active Substance: BISOPROLOL
     Indication: ARRHYTHMIA
     Dosage: 1.25 MG, UNK
     Route: 065
  9. KISQALI [Suspect]
     Active Substance: RIBOCICLIB
     Dosage: 400 MG, (ADMINISTRATION SCHEME 21 DAYS INTAKE, 7 DAYS PAUSE) QD
     Route: 048
     Dates: start: 20190124, end: 20190222
  10. KISQALI [Suspect]
     Active Substance: RIBOCICLIB
     Dosage: 400 MG, (ADMINISTRATION SCHEME 21 DAYS INTAKE, 7 DAYS PAUSE) QD
     Route: 048
     Dates: start: 20190302, end: 20190321
  11. COSOPT [Concomitant]
     Active Substance: DORZOLAMIDE HYDROCHLORIDE\TIMOLOL MALEATE
     Indication: PROPHYLAXIS
     Dosage: 20 MG, UNK
     Route: 065

REACTIONS (11)
  - Nausea [Unknown]
  - Leukopenia [Recovered/Resolved]
  - Palpitations [Recovered/Resolved]
  - Paraesthesia [Unknown]
  - Nasopharyngitis [Recovered/Resolved]
  - Insomnia [Unknown]
  - Epistaxis [Unknown]
  - Asthenia [Unknown]
  - Eczema [Recovered/Resolved]
  - Visual impairment [Unknown]
  - Decreased appetite [Unknown]

NARRATIVE: CASE EVENT DATE: 20181219
